FAERS Safety Report 5290362-8 (Version None)
Quarter: 2007Q2

REPORT INFORMATION
  Report Type: 
  Country: None (occurrence: None)
  Receive Date: 20070409
  Receipt Date: 20070329
  Transmission Date: 20071010
  Serious: Yes (Other)
  Sender: FDA-Public Use
  Company Number: GB-AVENTIS-200712669GDDC

PATIENT
  Age: 28 Year
  Sex: Female
  Weight: 105 kg

DRUGS (2)
  1. FLAGYL [Suspect]
     Route: 048
     Dates: start: 20070313, end: 20070314
  2. FLAGYL [Suspect]
     Route: 048
     Dates: start: 20070313, end: 20070314

REACTIONS (2)
  - ABORTION SPONTANEOUS [None]
  - DRUG EXPOSURE DURING PREGNANCY [None]
